FAERS Safety Report 6151553-7 (Version None)
Quarter: 2009Q2

REPORT INFORMATION
  Report Type: 
  Country: None (occurrence: None)
  Receive Date: 20090410
  Receipt Date: 20090408
  Transmission Date: 20091009
  Serious: Yes (Hospitalization, Other)
  Sender: FDA-Public Use
  Company Number: HK-ROCHE-626558

PATIENT
  Sex: Male
  Weight: 49 kg

DRUGS (14)
  1. NAPROSYN [Suspect]
     Indication: DRUG USE FOR UNKNOWN INDICATION
     Route: 048
     Dates: start: 20071025
  2. TRAMADOL [Suspect]
     Indication: DRUG USE FOR UNKNOWN INDICATION
     Route: 048
     Dates: start: 20080909
  3. MARAVIROC [Suspect]
     Route: 048
     Dates: start: 20080312
  4. DICLOFENAC SODIUM [Suspect]
     Indication: DRUG USE FOR UNKNOWN INDICATION
     Route: 048
     Dates: start: 20080731
  5. RALTEGRAVIR [Concomitant]
     Route: 048
     Dates: start: 20080312
  6. ATAZANAVIR SULFATE [Concomitant]
     Dates: start: 20070404
  7. AMITRIPTYLINE HCL [Concomitant]
     Dates: start: 20080129
  8. CLOTRIMAZOLE [Concomitant]
     Route: 048
     Dates: start: 19991208
  9. VITAMIN K [Concomitant]
     Dates: start: 20080304
  10. DOTHIEPIN [Concomitant]
     Dates: start: 20060412
  11. ITRACONAZOLE [Concomitant]
     Dates: start: 20020904
  12. LAMIVUDINE [Concomitant]
     Dates: start: 19991208
  13. MULTI-VITAMIN [Concomitant]
     Dosage: DRUG: MULTIVITAMINS
     Dates: start: 19991208
  14. FAMOTIDINE [Concomitant]
     Dates: start: 20080731

REACTIONS (8)
  - BLOOD ALKALINE PHOSPHATASE INCREASED [None]
  - BLOOD UREA INCREASED [None]
  - CONSTIPATION [None]
  - HAEMOGLOBIN DECREASED [None]
  - INTESTINAL DILATATION [None]
  - PLATELET COUNT INCREASED [None]
  - PYREXIA [None]
  - WHITE BLOOD CELL COUNT INCREASED [None]
